FAERS Safety Report 16023120 (Version 1)
Quarter: 2019Q1

REPORT INFORMATION
  Report Type: Spontaneous
  Country: US (occurrence: US)
  Receive Date: 20190301
  Receipt Date: 20190301
  Transmission Date: 20190418
  Serious: Yes (Other)
  Sender: FDA-Public Use
  Company Number: US-LEXICON PHARMACEUTICALS, INC-19-1606-00221

PATIENT
  Age: 76 Year
  Sex: Male

DRUGS (2)
  1. TELOTRISTAT ETHYL [Suspect]
     Active Substance: TELOTRISTAT ETHYL
     Route: 048
     Dates: start: 20181121
  2. WARFARIN [Concomitant]
     Active Substance: WARFARIN

REACTIONS (4)
  - Abdominal distension [Not Recovered/Not Resolved]
  - Radiotherapy [Unknown]
  - Flatulence [Not Recovered/Not Resolved]
  - International normalised ratio increased [Not Recovered/Not Resolved]

NARRATIVE: CASE EVENT DATE: 20190212
